FAERS Safety Report 18265032 (Version 1)
Quarter: 2020Q3

REPORT INFORMATION
  Report Type: Spontaneous
  Country: DE (occurrence: DE)
  Receive Date: 20200915
  Receipt Date: 20200915
  Transmission Date: 20201103
  Serious: Yes (Congenital Anomaly, Other)
  Sender: FDA-Public Use
  Company Number: DE-DRREDDYS-GER/GER/20/0126661

PATIENT
  Age: 5 Month
  Sex: Male
  Weight: 1.55 kg

DRUGS (4)
  1. CYTOTEC [Concomitant]
     Active Substance: MISOPROSTOL
     Indication: PRODUCT USED FOR UNKNOWN INDICATION
     Route: 064
     Dates: start: 20200305, end: 20200305
  2. OVITRELLE [Concomitant]
     Active Substance: CHORIOGONADOTROPIN ALFA
     Indication: PRODUCT USED FOR UNKNOWN INDICATION
     Dosage: 6500 [I.E./D ]
     Route: 064
     Dates: start: 20190814, end: 20190814
  3. QUETIAPINE. [Suspect]
     Active Substance: QUETIAPINE
     Indication: PRODUCT USED FOR UNKNOWN INDICATION
     Dosage: 150 [MG/D ]
     Route: 064
     Dates: start: 20190802, end: 20200305
  4. FOLLITROPIN [Concomitant]
     Active Substance: FOLLITROPIN
     Indication: PRODUCT USED FOR UNKNOWN INDICATION
     Dosage: 50 [IE/D ]
     Route: 064
     Dates: start: 20190803, end: 20190813

REACTIONS (3)
  - Foetal exposure during pregnancy [Unknown]
  - Spina bifida [Not Recovered/Not Resolved]
  - Arnold-Chiari malformation [Not Recovered/Not Resolved]
